FAERS Safety Report 16899885 (Version 1)
Quarter: 2019Q4

REPORT INFORMATION
  Report Type: Spontaneous
  Country: GB (occurrence: GB)
  Receive Date: 20191009
  Receipt Date: 20191009
  Transmission Date: 20200122
  Serious: Yes (Other)
  Sender: FDA-Public Use
  Company Number: GB-ASCEND THERAPEUTICS US, LLC-2075480

PATIENT
  Age: 56 Year
  Sex: Female

DRUGS (3)
  1. UTROGESTAN (MICRONIZED PROGESTERONE), UNKNOWN [Concomitant]
  2. OESTRODOSE (ESTRADIOL HEMIHYDRATE), UNKNOWN?4 PUMPS, BUT REDUCED TO 2 [Suspect]
     Active Substance: ESTRADIOL HEMIHYDRATE
     Dates: start: 20190102, end: 20190914
  3. ESTROGEL [Suspect]
     Active Substance: ESTRADIOL
     Indication: POSTMENOPAUSE
     Dates: start: 20190102, end: 20190914

REACTIONS (4)
  - Palpitations [Not Recovered/Not Resolved]
  - Heart rate increased [Unknown]
  - Alopecia [Not Recovered/Not Resolved]
  - Gastrooesophageal reflux disease [Not Recovered/Not Resolved]
